FAERS Safety Report 5659000-6 (Version None)
Quarter: 2008Q1

REPORT INFORMATION
  Report Type: 
  Country: None (occurrence: None)
  Receive Date: 20080310
  Receipt Date: 20070514
  Transmission Date: 20080703
  Serious: No
  Sender: FDA-Public Use
  Company Number: US-BAYER-200711515BCC

PATIENT
  Age: 53 Year
  Sex: Female
  Weight: 60 kg

DRUGS (2)
  1. ALEVE [Suspect]
     Indication: HEADACHE
     Dosage: UNIT DOSE: 220 MG
     Route: 048
  2. ALEVE [Suspect]
     Dosage: UNIT DOSE: 220 MG
     Route: 048
     Dates: start: 20070512

REACTIONS (9)
  - ERYTHEMA [None]
  - HYPERSENSITIVITY [None]
  - LIP SWELLING [None]
  - NASAL DISORDER [None]
  - OEDEMA PERIPHERAL [None]
  - PRURITUS [None]
  - SKIN TIGHTNESS [None]
  - SWOLLEN TONGUE [None]
  - URTICARIA [None]
